FAERS Safety Report 5915140-5 (Version None)
Quarter: 2008Q4

REPORT INFORMATION
  Report Type: 
  Country: None (occurrence: None)
  Receive Date: 20081010
  Receipt Date: 20081003
  Transmission Date: 20090506
  Serious: Yes (Hospitalization)
  Sender: FDA-Public Use
  Company Number: US-ASTRAZENECA-2008UW21617

PATIENT
  Sex: Male

DRUGS (6)
  1. NEXIUM [Suspect]
     Indication: GASTROOESOPHAGEAL REFLUX DISEASE
     Route: 048
     Dates: start: 20080923
  2. LISINOPRIL [Concomitant]
  3. CARVEDILOL [Concomitant]
     Dosage: 6.25 MG
  4. CARVEDILOL [Concomitant]
     Dosage: 3.1 MG
  5. LANOXIN [Concomitant]
  6. FUROSEMIDE [Concomitant]

REACTIONS (3)
  - DIARRHOEA [None]
  - DIZZINESS [None]
  - LOSS OF CONSCIOUSNESS [None]
